FAERS Safety Report 24456295 (Version 2)
Quarter: 2024Q4

REPORT INFORMATION
  Report Type: Report from Study
  Country: US (occurrence: US)
  Receive Date: 20241017
  Receipt Date: 20241018
  Transmission Date: 20250114
  Serious: No
  Sender: ROCHE
  Company Number: US-ROCHE-3510280

PATIENT
  Age: 54 Year
  Sex: Male

DRUGS (2)
  1. RITUXAN [Suspect]
     Active Substance: RITUXIMAB
     Indication: Factor VIII deficiency
     Dosage: 100 MG/HR AND MAY INCREASE RATE BY 100 MG/HR EVERY 30 MINUTES TO A MAXIMUM RATE OF 400 MG/HR EVERY 4
     Route: 065
  2. RITUXAN [Suspect]
     Active Substance: RITUXIMAB
     Indication: Haemorrhagic disorder

REACTIONS (2)
  - Off label use [Unknown]
  - No adverse event [Unknown]
